FAERS Safety Report 4525737-5 (Version None)
Quarter: 2004Q4

REPORT INFORMATION
  Report Type: 
  Country: None (occurrence: None)
  Receive Date: 20041116
  Receipt Date: 20040916
  Transmission Date: 20050328
  Serious: No
  Sender: FDA-Public Use
  Company Number: S04-USA-04056-01

PATIENT
  Age: 75 Year
  Sex: Male

DRUGS (12)
  1. NAMENDA [Suspect]
     Indication: AMNESIA
     Dosage: 10 MG BID PO
     Route: 048
     Dates: start: 20040522, end: 20040715
  2. NAMENDA [Suspect]
     Indication: AMNESIA
     Dosage: 5 MG QD PO
     Route: 048
     Dates: start: 20040501, end: 20040507
  3. NAMENDA [Suspect]
     Indication: AMNESIA
     Dosage: 5 MG BID PO
     Route: 048
     Dates: start: 20040508, end: 20040514
  4. NAMENDA [Suspect]
     Indication: AMNESIA
     Dosage: 15 MG QD PO
     Route: 048
     Dates: start: 20040515, end: 20040521
  5. ARICEPT [Concomitant]
  6. LEXAPRO [Concomitant]
  7. WELLBUTRIN [Concomitant]
  8. TEMAZEPAM [Concomitant]
  9. LOTREL [Concomitant]
  10. TOPROL-XL [Concomitant]
  11. DETROL [Concomitant]
  12. NITRO-DUR [Concomitant]

REACTIONS (5)
  - ASTHENIA [None]
  - BALANCE DISORDER [None]
  - FALL [None]
  - FATIGUE [None]
  - HALLUCINATION [None]
